FAERS Safety Report 5991349-X (Version None)
Quarter: 2008Q4

REPORT INFORMATION
  Report Type: 
  Country: None (occurrence: None)
  Receive Date: 20081202
  Receipt Date: 20080204
  Transmission Date: 20090506
  Serious: Yes (Other)
  Sender: FDA-Public Use
  Company Number: WAES 0802USA00750

PATIENT
  Age: 55 Year
  Sex: Female

DRUGS (1)
  1. FOSAMAX [Suspect]
     Indication: OSTEOPOROSIS
     Dosage: 10 MG/PO
     Route: 048
     Dates: start: 19990302, end: 20020606

REACTIONS (5)
  - ANXIETY [None]
  - DEPRESSION [None]
  - FEAR [None]
  - OSTEONECROSIS [None]
  - TOOTH DISORDER [None]
